FAERS Safety Report 21356669 (Version 1)
Quarter: 2022Q3

REPORT INFORMATION
  Report Type: Spontaneous
  Country: US (occurrence: US)
  Receive Date: 20220920
  Receipt Date: 20220920
  Transmission Date: 20221027
  Serious: Yes (Hospitalization)
  Sender: FDA-Public Use
  Company Number: US-GILEAD-2022-0598256

PATIENT
  Age: 50 Year
  Sex: Male

DRUGS (6)
  1. BIKTARVY [Suspect]
     Active Substance: BICTEGRAVIR SODIUM\EMTRICITABINE\TENOFOVIR ALAFENAMIDE FUMARATE
     Indication: HIV infection
     Route: 065
  2. SERTRALINE [Concomitant]
     Active Substance: SERTRALINE HYDROCHLORIDE
  3. PRAZOSIN [Concomitant]
     Active Substance: PRAZOSIN
  4. PALIPERIDONE PALMITATE [Concomitant]
     Active Substance: PALIPERIDONE PALMITATE
  5. RILPIVIRINE [Concomitant]
     Active Substance: RILPIVIRINE
  6. EMTRICITABINE\RILPIVIRINE\TENOFOVIR DISOPROXIL FUMARATE [Concomitant]
     Active Substance: EMTRICITABINE\RILPIVIRINE\TENOFOVIR DISOPROXIL FUMARATE

REACTIONS (5)
  - Insulin C-peptide abnormal [Unknown]
  - Blood ketone body increased [Unknown]
  - Blood glucose abnormal [Recovering/Resolving]
  - Abdominal pain [Unknown]
  - Glycosylated haemoglobin increased [Recovering/Resolving]
